FAERS Safety Report 11166892 (Version 1)
Quarter: 2015Q2

REPORT INFORMATION
  Report Type: Spontaneous
  Country: US (occurrence: None)
  Receive Date: 20150604
  Receipt Date: 20150604
  Transmission Date: 20150821
  Serious: Yes (Hospitalization, Other)
  Sender: FDA-Public Use
  Company Number: None

PATIENT
  Age: 0 Day
  Sex: Female

DRUGS (13)
  1. ONDANSETRON [Concomitant]
     Active Substance: ONDANSETRON
  2. BUSPIRONE (BUSPAR) [Concomitant]
  3. CETIRIZINE (ZYRTEC) [Concomitant]
  4. IBUPROFEN-DIPHENHYDRAMINE (INBUPROFEN PM) [Concomitant]
  5. LORAZEPAM (ATIVAN) [Concomitant]
  6. TRAMADOL [Concomitant]
     Active Substance: TRAMADOL
  7. AMANTADINE HCL (SYMMETREL) [Concomitant]
  8. ESZOPICLONE (LUNESTA) [Concomitant]
  9. CYANOCOBALAMIN (VITAMIN B-12) [Concomitant]
  10. TYSABRI [Suspect]
     Active Substance: NATALIZUMAB
     Indication: RELAPSING-REMITTING MULTIPLE SCLEROSIS
     Dosage: TYSABRI
     Route: 042
     Dates: start: 201308, end: 201504
  11. TYLENOL [Concomitant]
     Active Substance: ACETAMINOPHEN
  12. AMITRIPTYLINE (ELVAIL) [Concomitant]
  13. CHOLECALCIFEROL [Concomitant]
     Active Substance: CHOLECALCIFEROL

REACTIONS (2)
  - Meningitis viral [None]
  - Herpes zoster [None]

NARRATIVE: CASE EVENT DATE: 20150522
